FAERS Safety Report 4951101-0 (Version None)
Quarter: 2006Q1

REPORT INFORMATION
  Report Type: 
  Country: None (occurrence: None)
  Receive Date: 20060322
  Receipt Date: 20050414
  Transmission Date: 20060701
  Serious: Yes (Other)
  Sender: FDA-Public Use
  Company Number: US-MERCK-0504USA02941

PATIENT
  Age: 54 Year
  Sex: Male
  Weight: 91 kg

DRUGS (26)
  1. VIOXX [Suspect]
     Indication: RHEUMATOID ARTHRITIS
     Route: 048
     Dates: start: 20000101, end: 20040901
  2. VIOXX [Suspect]
     Route: 048
     Dates: start: 20000101, end: 20040901
  3. ZOCOR [Concomitant]
     Indication: CARDIAC DISORDER
     Route: 065
     Dates: start: 19990101
  4. ASPIRIN [Concomitant]
     Indication: PROPHYLAXIS
     Route: 065
     Dates: start: 20030101
  5. PLAVIX [Concomitant]
     Indication: ANTIPLATELET THERAPY
     Route: 065
     Dates: start: 20030101
  6. IMDUR [Concomitant]
     Indication: CARDIAC DISORDER
     Route: 065
  7. ATENOLOL [Concomitant]
     Indication: CARDIAC DISORDER
     Route: 065
     Dates: start: 20031201, end: 20060101
  8. VASOTEC RPD [Concomitant]
     Indication: CARDIAC DISORDER
     Route: 065
     Dates: start: 20031201
  9. ARAVA [Concomitant]
     Indication: RHEUMATOID ARTHRITIS
     Route: 065
  10. MEDROL [Concomitant]
     Indication: RHEUMATOID ARTHRITIS
     Route: 065
  11. INJECTABLE GOLD (UNSPECIFIED) [Concomitant]
     Indication: RHEUMATOID ARTHRITIS
     Route: 051
  12. INJECTABLE GOLD (UNSPECIFIED) [Concomitant]
     Route: 051
  13. PLAQUENIL [Concomitant]
     Indication: RHEUMATOID ARTHRITIS
     Route: 065
  14. ZITHROMAX [Concomitant]
     Indication: NASOPHARYNGITIS
     Route: 065
  15. LORAZEPAM [Concomitant]
     Indication: SLEEP DISORDER
     Route: 065
  16. HUMIRA [Concomitant]
     Indication: RHEUMATOID ARTHRITIS
     Route: 065
     Dates: start: 20030101
  17. MONOPRIL [Concomitant]
     Indication: HYPERTENSION
     Route: 065
     Dates: start: 20030101
  18. MONOPRIL [Concomitant]
     Route: 065
     Dates: start: 20030101
  19. TOPROL-XL [Concomitant]
     Indication: HYPERTENSION
     Route: 065
     Dates: start: 20030101
  20. CARDIZEM [Concomitant]
     Route: 065
     Dates: start: 20030101
  21. CARDIZEM [Concomitant]
     Route: 065
     Dates: start: 20030101
  22. NAPROXEN [Concomitant]
     Indication: PAIN
     Route: 065
     Dates: start: 19970101
  23. NAPROXEN [Concomitant]
     Route: 065
     Dates: start: 19970101
  24. ADVIL [Concomitant]
     Indication: PAIN
     Route: 065
     Dates: start: 19970101
  25. METHOTREXATE [Concomitant]
     Route: 065
     Dates: start: 19970101, end: 20010101
  26. METHOTREXATE [Concomitant]
     Route: 065
     Dates: start: 19970101, end: 20010101

REACTIONS (8)
  - ANGINA PECTORIS [None]
  - CHEST PAIN [None]
  - CORONARY ARTERY OCCLUSION [None]
  - HYPERTENSION [None]
  - MYOCARDIAL INFARCTION [None]
  - NASOPHARYNGITIS [None]
  - SINUS DISORDER [None]
  - SLEEP DISORDER [None]
